FAERS Safety Report 23110190 (Version 1)
Quarter: 2023Q4

REPORT INFORMATION
  Report Type: Report from Study
  Country: US (occurrence: US)
  Receive Date: 20231026
  Receipt Date: 20231026
  Transmission Date: 20240110
  Serious: Yes (Other)
  Sender: FDA-Public Use
  Company Number: US-BAYER-2023A133702

PATIENT
  Age: 37 Year
  Sex: Female

DRUGS (4)
  1. ADEMPAS [Suspect]
     Active Substance: RIOCIGUAT
     Indication: Pulmonary arterial hypertension
     Dosage: UNK
  2. ADEMPAS [Suspect]
     Active Substance: RIOCIGUAT
     Indication: Pulmonary arterial hypertension
     Dosage: 2.5 MG, TID
     Route: 048
     Dates: start: 202308
  3. ADEMPAS [Suspect]
     Active Substance: RIOCIGUAT
     Indication: Pulmonary arterial hypertension
     Dosage: 2.5 MG, TID
     Route: 048
     Dates: start: 202308
  4. OPSUMIT [Concomitant]
     Active Substance: MACITENTAN

REACTIONS (5)
  - Maternal exposure during pregnancy [None]
  - Contraindicated product administered [None]
  - Abortion [None]
  - Product dose omission issue [None]
  - Product dose omission issue [None]

NARRATIVE: CASE EVENT DATE: 20230919
